FAERS Safety Report 25521135 (Version 1)
Quarter: 2025Q3

REPORT INFORMATION
  Report Type: Spontaneous
  Country: EU (occurrence: EU)
  Receive Date: 20250705
  Receipt Date: 20250705
  Transmission Date: 20251021
  Serious: Yes (Death, Hospitalization, Other)
  Sender: AMGEN
  Company Number: EU-AMGEN-ITASP2025128958

PATIENT
  Age: 20 Year
  Sex: Female

DRUGS (19)
  1. BLINATUMOMAB [Suspect]
     Active Substance: BLINATUMOMAB
     Indication: B-cell type acute leukaemia
     Route: 065
  2. CYCLOPHOSPHAMIDE [Concomitant]
     Active Substance: CYCLOPHOSPHAMIDE
     Route: 065
  3. CYCLOPHOSPHAMIDE [Concomitant]
     Active Substance: CYCLOPHOSPHAMIDE
     Route: 065
  4. VINCRISTINE [Concomitant]
     Active Substance: VINCRISTINE
     Route: 065
  5. VINCRISTINE [Concomitant]
     Active Substance: VINCRISTINE
     Route: 065
  6. IDARUBICIN [Concomitant]
     Active Substance: IDARUBICIN
     Route: 065
  7. PEG/L-ASPARAGINASE [Concomitant]
     Active Substance: PEGASPARGASE
     Route: 065
  8. DEXAMETHASONE [Concomitant]
     Active Substance: DEXAMETHASONE
  9. METHOTREXATE [Concomitant]
     Active Substance: METHOTREXATE
     Indication: Prophylaxis
     Route: 029
  10. CYTARABINE [Concomitant]
     Active Substance: CYTARABINE
     Indication: Prophylaxis
     Route: 065
  11. PREDNISONE [Concomitant]
     Active Substance: PREDNISONE
     Indication: Prophylaxis
     Route: 065
  12. INOTUZUMAB OZOGAMICIN [Concomitant]
     Active Substance: INOTUZUMAB OZOGAMICIN
     Route: 065
  13. GENETICALLY-MODIFIED AUTOLOGOUS T CELLS NOS [Concomitant]
     Active Substance: GENETICALLY-MODIFIED AUTOLOGOUS T CELLS NOS
     Route: 065
     Dates: start: 202404
  14. FLUDARABINE [Concomitant]
     Active Substance: FLUDARABINE PHOSPHATE
     Route: 065
  15. FLUDARABINE [Concomitant]
     Active Substance: FLUDARABINE PHOSPHATE
     Route: 065
  16. FLUDARABINE [Concomitant]
     Active Substance: FLUDARABINE PHOSPHATE
     Route: 065
  17. THYMOCYTE IMMUNE GLOBULIN NOS [Concomitant]
     Active Substance: THYMOCYTE IMMUNE GLOBULIN NOS
     Route: 065
  18. CYCLOSPORINE [Concomitant]
     Active Substance: CYCLOSPORINE
     Route: 065
  19. MYCOPHENOLATE MOFETIL [Concomitant]
     Active Substance: MYCOPHENOLATE MOFETIL
     Dosage: 1000 MILLIGRAM, BID FROM DAY+ 5 TO + 30
     Route: 065

REACTIONS (16)
  - Multi-organ disorder [Fatal]
  - Neurotoxicity [Unknown]
  - Acute graft versus host disease [Unknown]
  - Chronic graft versus host disease in skin [Unknown]
  - Graft versus host disease in gastrointestinal tract [Unknown]
  - Venoocclusive liver disease [Unknown]
  - Thrombotic microangiopathy [Unknown]
  - COVID-19 [Unknown]
  - Device related bacteraemia [Unknown]
  - Bronchopulmonary aspergillosis [Unknown]
  - Encephalopathy [Unknown]
  - Febrile neutropenia [Unknown]
  - Enterococcal infection [Unknown]
  - Bacteraemia [Unknown]
  - Immune system disorder [Unknown]
  - Rhinovirus infection [Unknown]

NARRATIVE: CASE EVENT DATE: 20250101
